FAERS Safety Report 8789336 (Version 4)
Quarter: 2013Q4

REPORT INFORMATION
  Report Type: Spontaneous
  Country: None (occurrence: None)
  Receive Date: 20120905
  Receipt Date: 20131021
  Transmission Date: 20140711
  Serious: Yes (Hospitalization, Other)
  Sender: FDA-Public Use
  Company Number: AUR-APL-2012-03645

PATIENT
  Age: 65 Year
  Sex: Male

DRUGS (5)
  1. METFORMIN [Suspect]
     Indication: TYPE 2 DIABETES MELLITUS
     Dates: end: 20111201
  2. GLICLAZIDE [Suspect]
     Indication: TYPE 2 DIABETES MELLITUS
     Dates: end: 20111201
  3. SAXAGLIPTIN [Suspect]
     Indication: TYPE 2 DIABETES MELLITUS
     Dates: start: 20071021
  4. ASPIRIN (ACETYLSALICYLIC ACID) [Concomitant]
  5. RAMIPRIL (RAMIPRIL) [Concomitant]

REACTIONS (10)
  - Hypoglycaemia [None]
  - Gastroenteritis [None]
  - Constipation [None]
  - Vomiting [None]
  - Asthenia [None]
  - Fall [None]
  - Cerebrovascular accident [None]
  - Hypotension [None]
  - General physical health deterioration [None]
  - Incontinence [None]
